FAERS Safety Report 10929658 (Version 2)
Quarter: 2015Q1

REPORT INFORMATION
  Report Type: Spontaneous
  Country: CO (occurrence: CO)
  Receive Date: 20150319
  Receipt Date: 20150326
  Transmission Date: 20150721
  Serious: Yes (Hospitalization)
  Sender: FDA-Public Use
  Company Number: CO-PFIZER INC-2015069200

PATIENT
  Age: 50 Year
  Sex: Male

DRUGS (3)
  1. EPAMIN [Suspect]
     Active Substance: PHENYTOIN SODIUM
     Dosage: 100 MG, 4X/DAY
     Route: 048
  2. VALPROIC ACID. [Concomitant]
     Active Substance: VALPROIC ACID
     Dosage: 250 MG, UNK
     Dates: start: 200908
  3. CLONAZEPAM. [Concomitant]
     Active Substance: CLONAZEPAM
     Dosage: 0.5 MG, UNK
     Dates: start: 200908

REACTIONS (1)
  - General physical health deterioration [Recovered/Resolved]

NARRATIVE: CASE EVENT DATE: 200908
